FAERS Safety Report 10060695 (Version 1)
Quarter: 2014Q2

REPORT INFORMATION
  Report Type: Report from Study
  Country: DE (occurrence: DE)
  Receive Date: 20140404
  Receipt Date: 20140404
  Transmission Date: 20141212
  Serious: Yes (Hospitalization)
  Sender: FDA-Public Use
  Company Number: DE-ABBVIE-14P-062-1218322-00

PATIENT
  Age: 77 Year
  Sex: Female
  Weight: 63 kg

DRUGS (4)
  1. HUMIRA [Suspect]
     Indication: RHEUMATOID ARTHRITIS
     Route: 058
     Dates: start: 200701
  2. PREDNISOLONE [Concomitant]
     Indication: RHEUMATOID ARTHRITIS
     Route: 048
     Dates: start: 1995
  3. ALENDRONIC ACID [Concomitant]
     Indication: OSTEOPOROSIS
     Route: 048
     Dates: start: 2006
  4. URSODEOXYCHOLIC ACID [Concomitant]
     Indication: CHOLESTASIS
     Route: 048
     Dates: start: 2000

REACTIONS (2)
  - Vertigo positional [Recovered/Resolved]
  - Lung infection [Recovered/Resolved]
